FAERS Safety Report 4723231-X (Version None)
Quarter: 2005Q3

REPORT INFORMATION
  Report Type: 
  Country: None (occurrence: None)
  Receive Date: 20050719
  Receipt Date: 20040813
  Transmission Date: 20060218
  Serious: Yes (Hospitalization)
  Sender: FDA-Public Use
  Company Number: 203043

PATIENT
  Age: 37 Year
  Sex: Female
  Weight: 57.1532 kg

DRUGS (10)
  1. AVONEX [Suspect]
     Indication: MULTIPLE SCLEROSIS
     Dosage: 30 UG; QW; IM;  30 UG; QW; IM;  IM;  30 UG; QW; IM;  30 UG; QW; IM
     Route: 030
     Dates: start: 20010101, end: 20030101
  2. AVONEX [Suspect]
     Indication: MULTIPLE SCLEROSIS
     Dosage: 30 UG; QW; IM;  30 UG; QW; IM;  IM;  30 UG; QW; IM;  30 UG; QW; IM
     Route: 030
     Dates: start: 20030101, end: 20030101
  3. AVONEX [Suspect]
     Indication: MULTIPLE SCLEROSIS
     Dosage: 30 UG; QW; IM;  30 UG; QW; IM;  IM;  30 UG; QW; IM;  30 UG; QW; IM
     Route: 030
     Dates: start: 20030811, end: 20040601
  4. AVONEX [Suspect]
     Indication: MULTIPLE SCLEROSIS
     Dosage: 30 UG; QW; IM;  30 UG; QW; IM;  IM;  30 UG; QW; IM;  30 UG; QW; IM
     Route: 030
     Dates: start: 19980101
  5. AVONEX [Suspect]
     Indication: MULTIPLE SCLEROSIS
     Dosage: 30 UG; QW; IM;  30 UG; QW; IM;  IM;  30 UG; QW; IM;  30 UG; QW; IM
     Route: 030
     Dates: start: 20040811
  6. CIPRO [Concomitant]
  7. ATIVAN [Concomitant]
  8. LITHIUM [Concomitant]
  9. NOVANTRONE [Concomitant]
  10. . [Concomitant]

REACTIONS (11)
  - ANAEMIA [None]
  - ANXIETY [None]
  - BIPOLAR DISORDER [None]
  - CYSTITIS [None]
  - DIARRHOEA [None]
  - INFLUENZA LIKE ILLNESS [None]
  - MULTIPLE SCLEROSIS [None]
  - MULTIPLE SCLEROSIS RELAPSE [None]
  - MUSCLE SPASTICITY [None]
  - URINARY INCONTINENCE [None]
  - VIRAL INFECTION [None]
